FAERS Safety Report 10690658 (Version 2)
Quarter: 2015Q1

REPORT INFORMATION
  Report Type: Report from Study
  Country: NZ (occurrence: NZ)
  Receive Date: 20150105
  Receipt Date: 20150105
  Transmission Date: 20150720
  Serious: Yes (Hospitalization)
  Sender: FDA-Public Use
  Company Number: NZ-PFIZER INC-2014345524

PATIENT
  Age: 25 Year
  Sex: Female

DRUGS (1)
  1. CRIZOTINIB [Suspect]
     Active Substance: CRIZOTINIB
     Dosage: UNK

REACTIONS (9)
  - Arrhythmia [Unknown]
  - Diarrhoea [Unknown]
  - Cold sweat [Unknown]
  - Feeling hot [Unknown]
  - Electrocardiogram QT prolonged [Recovered/Resolved]
  - Peripheral swelling [Unknown]
  - Perineal pain [Unknown]
  - Dysuria [Unknown]
  - Fatigue [Unknown]
